FAERS Safety Report 10040751 (Version 1)
Quarter: 2014Q1

REPORT INFORMATION
  Report Type: Spontaneous
  Country: US (occurrence: None)
  Receive Date: 20140326
  Receipt Date: 20140326
  Transmission Date: 20141002
  Serious: Yes (Other)
  Sender: FDA-Public Use
  Company Number: None

PATIENT
  Age: 36 Year
  Sex: Female
  Weight: 68.95 kg

DRUGS (1)
  1. RELPAX [Suspect]
     Indication: MIGRAINE
     Route: 048

REACTIONS (4)
  - Alopecia [None]
  - Dyspepsia [None]
  - Drug ineffective [None]
  - Ovarian cyst [None]
